FAERS Safety Report 20429638 (Version 9)
Quarter: 2025Q1

REPORT INFORMATION
  Report Type: Report from Study
  Country: CA (occurrence: CA)
  Receive Date: 20220204
  Receipt Date: 20250305
  Transmission Date: 20250409
  Serious: Yes (Hospitalization, Other)
  Sender: TAKEDA
  Company Number: CA-TAKEDA-CA202013903

PATIENT
  Sex: Male
  Weight: 71 kg

DRUGS (26)
  1. TEDUGLUTIDE [Suspect]
     Active Substance: TEDUGLUTIDE
     Indication: Short-bowel syndrome
  2. TEDUGLUTIDE [Suspect]
     Active Substance: TEDUGLUTIDE
  3. TEDUGLUTIDE [Suspect]
     Active Substance: TEDUGLUTIDE
     Dosage: 3.4 MILLIGRAM, QD
     Dates: start: 20200413
  4. TEDUGLUTIDE [Suspect]
     Active Substance: TEDUGLUTIDE
     Dosage: 3.4 MILLIGRAM, QD
     Dates: start: 20200413
  5. TEDUGLUTIDE [Suspect]
     Active Substance: TEDUGLUTIDE
     Dosage: 3.4 MILLIGRAM, QD
     Dates: start: 20200413
  6. TEDUGLUTIDE [Suspect]
     Active Substance: TEDUGLUTIDE
     Dosage: 3.4 MILLIGRAM, QD
     Dates: start: 20200420
  7. TEDUGLUTIDE [Suspect]
     Active Substance: TEDUGLUTIDE
     Dosage: 3.4 MILLIGRAM, QD
     Dates: start: 20200427
  8. TEDUGLUTIDE [Suspect]
     Active Substance: TEDUGLUTIDE
     Dosage: 3.4 MILLIGRAM, QD
  9. FENOFIBRATE [Concomitant]
     Active Substance: FENOFIBRATE
     Indication: Product used for unknown indication
     Dosage: 200 MILLIGRAM, QD
  10. URSODIOL [Concomitant]
     Active Substance: URSODIOL
     Indication: Product used for unknown indication
     Dosage: 500 MILLIGRAM, BID
  11. SODIUM CHLORIDE [Concomitant]
     Active Substance: SODIUM CHLORIDE
     Indication: Product used for unknown indication
  12. VITAMIN B12 [Concomitant]
     Active Substance: CYANOCOBALAMIN
     Indication: Product used for unknown indication
     Dosage: 1 MILLIGRAM, MONTHLY
  13. VITAMIN D NOS [Concomitant]
     Active Substance: CHOLECALCIFEROL\ERGOCALCIFEROL
  14. IMURAN [Concomitant]
     Active Substance: AZATHIOPRINE
  15. TACROLIMUS [Concomitant]
     Active Substance: TACROLIMUS
  16. ABRILADA [Concomitant]
     Active Substance: ADALIMUMAB-AFZB
  17. CHOLECALCIFEROL [Concomitant]
     Active Substance: CHOLECALCIFEROL
     Indication: Product used for unknown indication
     Dosage: 10000 INTERNATIONAL UNIT, 5/WEEK
  18. HUMIRA [Concomitant]
     Active Substance: ADALIMUMAB
     Indication: Product used for unknown indication
     Dosage: 40 MILLIGRAM, Q2WEEKS
  19. IMODIUM [Concomitant]
     Active Substance: LOPERAMIDE HYDROCHLORIDE
     Indication: Product used for unknown indication
  20. REMICADE [Concomitant]
     Active Substance: INFLIXIMAB
     Indication: Product used for unknown indication
  21. IRON [Concomitant]
     Active Substance: IRON
     Indication: Product used for unknown indication
  22. PREDNISONE [Concomitant]
     Active Substance: PREDNISONE
  23. TPN [Concomitant]
     Active Substance: AMINO ACIDS\DEXTROSE\ELECTROLYTES NOS\SOYBEAN OIL
     Dosage: 1950 MILLILITER, 3/WEEK
     Dates: start: 202001
  24. TPN [Concomitant]
     Active Substance: AMINO ACIDS\DEXTROSE\ELECTROLYTES NOS\SOYBEAN OIL
     Dosage: 1560 MILLILITER, 3/WEEK
     Dates: start: 202005
  25. TPN [Concomitant]
     Active Substance: AMINO ACIDS\DEXTROSE\ELECTROLYTES NOS\SOYBEAN OIL
     Dosage: 2175 MILLILITER, 2/WEEK
     Dates: start: 202105
  26. TPN [Concomitant]
     Active Substance: AMINO ACIDS\DEXTROSE\ELECTROLYTES NOS\SOYBEAN OIL

REACTIONS (23)
  - Hepatic failure [Recovered/Resolved]
  - Hepatic enzyme increased [Unknown]
  - Injection site hypoaesthesia [Recovering/Resolving]
  - Injection site mass [Recovered/Resolved]
  - Fatigue [Unknown]
  - Urine output increased [Recovering/Resolving]
  - Diarrhoea [Unknown]
  - Stoma complication [Unknown]
  - Blood cholesterol increased [Unknown]
  - Hypovitaminosis [Unknown]
  - Nocturia [Unknown]
  - Blood triglycerides increased [Unknown]
  - Asthenia [Unknown]
  - Vitamin D increased [Unknown]
  - Blood iron decreased [Unknown]
  - Injection site discomfort [Recovered/Resolved]
  - Incorrect product administration duration [Unknown]
  - Product dose omission issue [Unknown]
  - Abdominal pain upper [Recovered/Resolved]
  - Abdominal distension [Unknown]
  - Gastrointestinal stoma complication [Unknown]
  - Flatulence [Unknown]
  - Injection site pain [Unknown]

NARRATIVE: CASE EVENT DATE: 20200101
